FAERS Safety Report 6153775-8 (Version None)
Quarter: 2009Q2

REPORT INFORMATION
  Report Type: 
  Country: None (occurrence: None)
  Receive Date: 20090410
  Receipt Date: 20090330
  Transmission Date: 20091009
  Serious: Yes (Death)
  Sender: FDA-Public Use
  Company Number: 2009AP001373

PATIENT
  Age: 49 Year
  Sex: Female

DRUGS (8)
  1. DILTIAZEM HCL [Suspect]
  2. FLUOXETINE HYDROCHLORIDE [Suspect]
  3. PHENYTOIN [Suspect]
  4. PROCYCLIDINE HYDROCHLORIDE 2MG TAB [Suspect]
  5. DEXTROMETHORPHAN HYDROBROMIDE [Suspect]
  6. CHLORPHENTERMINE 65MG TAB [Suspect]
  7. METHAMPHETAMINE HYDROCHLORIDE [Suspect]
  8. OLANZAPINE [Suspect]

REACTIONS (15)
  - ACCIDENTAL DEATH [None]
  - ACUTE RESPIRATORY DISTRESS SYNDROME [None]
  - ARTERIOSCLEROSIS CORONARY ARTERY [None]
  - CHRONIC OBSTRUCTIVE PULMONARY DISEASE [None]
  - CIRCULATORY COLLAPSE [None]
  - CORONARY ARTERY DISEASE [None]
  - DRUG TOXICITY [None]
  - FIBROSIS [None]
  - LUNG ABSCESS [None]
  - MYOCARDIAL INFARCTION [None]
  - PLEURAL EFFUSION [None]
  - PLEURISY [None]
  - PNEUMONIA [None]
  - POST-TRAUMATIC EPILEPSY [None]
  - UPPER RESPIRATORY TRACT INFECTION [None]
